FAERS Safety Report 10331523 (Version 1)
Quarter: 2014Q3

REPORT INFORMATION
  Report Type: Spontaneous
  Country: US (occurrence: None)
  Receive Date: 20140721
  Receipt Date: 20140721
  Transmission Date: 20150326
  Serious: No
  Sender: FDA-Public Use
  Company Number: None

PATIENT

DRUGS (1)
  1. KLOR-CON EXTENDED-RELEASE [Suspect]
     Active Substance: POTASSIUM CHLORIDE

REACTIONS (2)
  - Incorrect dose administered [None]
  - Drug dispensing error [None]
